FAERS Safety Report 6691383-0 (Version None)
Quarter: 2010Q2

REPORT INFORMATION
  Report Type: 
  Country: None (occurrence: None)
  Receive Date: 20100422
  Receipt Date: 20100414
  Transmission Date: 20101027
  Serious: Yes (Other)
  Sender: FDA-Public Use
  Company Number: BR-ELI_LILLY_AND_COMPANY-BR201004004110

PATIENT
  Sex: Female
  Weight: 72.9 kg

DRUGS (7)
  1. PRASUGREL HYDROCHLORIDE [Suspect]
     Indication: ACUTE CORONARY SYNDROME
  2. CARVEDILOL [Concomitant]
     Indication: HYPERTENSION
     Dates: start: 20090924
  3. LOSARTAN POTASSIUM [Concomitant]
     Indication: HYPERTENSION
     Dates: start: 20090924
  4. DIGOXIN [Concomitant]
     Indication: CARDIAC FAILURE
     Dates: start: 20090924
  5. ALDACTONE [Concomitant]
     Indication: CARDIAC FAILURE
     Dates: start: 20090924
  6. LASIX [Concomitant]
     Indication: CARDIAC FAILURE
     Dates: start: 20090924
  7. ASPIRIN [Concomitant]
     Dosage: 200 MG, UNK
     Dates: start: 20090924

REACTIONS (1)
  - HAEMANGIOMA [None]
